FAERS Safety Report 17845183 (Version 1)
Quarter: 2020Q2

REPORT INFORMATION
  Report Type: Spontaneous
  Country: ES (occurrence: ES)
  Receive Date: 20200601
  Receipt Date: 20200601
  Transmission Date: 20200714
  Serious: Yes (Other)
  Sender: FDA-Public Use
  Company Number: ES-ROCHE-2610315

PATIENT
  Age: 62 Year
  Sex: Male

DRUGS (2)
  1. LOMUSTINE. [Suspect]
     Active Substance: LOMUSTINE
     Indication: ASTROCYTOMA MALIGNANT
     Dosage: LOMUSTINA/BEVACIZUMAB 240/940 MG CADA 6 SEMANAS (CICLO 2)
     Route: 065
     Dates: start: 20190611, end: 20190806
  2. BEVACIZUMAB. [Suspect]
     Active Substance: BEVACIZUMAB
     Indication: ASTROCYTOMA MALIGNANT
     Dosage: LOMUSTINA/BEVACIZUMAB 240/940 MG
     Route: 065
     Dates: start: 20190611, end: 20190806

REACTIONS (2)
  - Liver injury [Not Recovered/Not Resolved]
  - Thrombocytopenia [Not Recovered/Not Resolved]

NARRATIVE: CASE EVENT DATE: 20190819
